FAERS Safety Report 7020865-7 (Version None)
Quarter: 2010Q3

REPORT INFORMATION
  Report Type: 
  Country: None (occurrence: None)
  Receive Date: 20100929
  Receipt Date: 20100920
  Transmission Date: 20110219
  Serious: Yes (Other)
  Sender: FDA-Public Use
  Company Number: FI-PFIZER INC-2010108634

PATIENT
  Age: 75 Year
  Sex: Male

DRUGS (9)
  1. XALATAN [Suspect]
     Indication: GLAUCOMA
     Dosage: 1-2 DROPS TO THE RIGHT EYE IN THE EVENINGS
     Route: 047
     Dates: start: 20100101, end: 20100801
  2. APURIN [Concomitant]
     Indication: GOUT
     Dosage: UNK
     Route: 048
  3. PRIMASPAN [Concomitant]
     Indication: CARDIOVASCULAR DISORDER
     Dosage: 250 MG ONCE DAILY
     Route: 048
  4. PRIMASPAN [Concomitant]
     Indication: ARRHYTHMIA
  5. PRIMASPAN [Concomitant]
     Indication: ATRIAL FIBRILLATION
  6. ALFUZOSIN HCL [Concomitant]
     Indication: BENIGN PROSTATIC HYPERPLASIA
     Dosage: UNK
     Route: 048
  7. LAXOBERON [Concomitant]
     Indication: GASTROINTESTINAL MOTILITY DISORDER
     Dosage: UNK
  8. CORDARONE [Concomitant]
     Indication: ARRHYTHMIA
     Dosage: UNK
     Route: 048
  9. CORDARONE [Concomitant]
     Indication: ATRIAL FIBRILLATION

REACTIONS (1)
  - ARRHYTHMIA [None]
